FAERS Safety Report 9560006 (Version 1)
Quarter: 2013Q3

REPORT INFORMATION
  Report Type: Spontaneous
  Country: US (occurrence: None)
  Receive Date: 20130909
  Receipt Date: 20130909
  Transmission Date: 20140515
  Serious: Yes (Other)
  Sender: FDA-Public Use
  Company Number: 380186

PATIENT
  Age: 60 Year
  Sex: Male
  Weight: 131.5 kg

DRUGS (7)
  1. VICTOZA (LIRAGLUTIDE) SOLUTION FOR INJECTION, 5MG/ML [Suspect]
     Indication: TYPE 2 DIABETES MELLITUS
     Dosage: 1.8 MG, QD, SUBCUTANEOUS
     Route: 058
     Dates: start: 20130201, end: 20130529
  2. JANUMET (METFORMIN HYDROCHLORIDE, SITAGLIPTIN PHOSPHATE MONOHYDRATE) [Concomitant]
  3. MIRALAX /00754501/ (MACROGOL) [Concomitant]
  4. LEXAPRO (ESCITALOPRAM OXALATE) [Concomitant]
  5. DIOVAN (VALSARTAN) [Concomitant]
  6. CESTOR (ROSUVASTATIN CALCIUM) [Concomitant]
  7. ASPIRIN (ACETYLSALICYLIC ACID) [Suspect]

REACTIONS (1)
  - Pancreatitis [None]
